FAERS Safety Report 5197846-1 (Version None)
Quarter: 2006Q4

REPORT INFORMATION
  Report Type: 
  Country: None (occurrence: None)
  Receive Date: 20061228
  Receipt Date: 20061221
  Transmission Date: 20070319
  Serious: Yes (Death)
  Sender: FDA-Public Use
  Company Number: 233890

PATIENT
  Age: 76 Year
  Sex: Female

DRUGS (9)
  1. RANIBIZUMAB(RANIBIZUMAB) PWDR + SOLVENT, INJECTION SOLN [Suspect]
     Indication: MACULAR DEGENERATION
     Dosage: 1/MONTH, INTRAVITREAL
     Dates: start: 20050509
  2. TYLENOL (CAPLET) [Concomitant]
  3. LUTEIN (LUTEIN) [Concomitant]
  4. VITEYES (ASCORBIC ACID, BETA CAROTENE, COPPER, VITAMIN E, ZINC OXIDE) [Concomitant]
  5. PREDNISONE TAB [Concomitant]
  6. FOSAMAX [Concomitant]
  7. CALCIUM (CALCIUM NOS) [Concomitant]
  8. IODINE (IODINE NOS) [Concomitant]
  9. VICODIN [Concomitant]

REACTIONS (1)
  - DEATH [None]
